FAERS Safety Report 7805707-1 (Version None)
Quarter: 2011Q4

REPORT INFORMATION
  Report Type: 
  Country: None (occurrence: None)
  Receive Date: 20111011
  Receipt Date: 20111005
  Transmission Date: 20120403
  Serious: Yes (Hospitalization)
  Sender: FDA-Public Use
  Company Number: BR-BIOGENIDEC-2011BI038397

PATIENT
  Age: 24 Year
  Sex: Female

DRUGS (1)
  1. AVONEX [Suspect]
     Indication: MULTIPLE SCLEROSIS
     Route: 030
     Dates: start: 20050101

REACTIONS (6)
  - COORDINATION ABNORMAL [None]
  - PAIN [None]
  - NASOPHARYNGITIS [None]
  - SOMNOLENCE [None]
  - OEDEMA PERIPHERAL [None]
  - GAIT DISTURBANCE [None]
